FAERS Safety Report 9575794 (Version 2)
Quarter: 2013Q4

REPORT INFORMATION
  Report Type: Spontaneous
  Country: US (occurrence: US)
  Receive Date: 20131001
  Receipt Date: 20131001
  Transmission Date: 20140711
  Serious: No
  Sender: FDA-Public Use
  Company Number: US-AMGEN-USASP2012059905

PATIENT
  Age: 83 Year
  Sex: Male
  Weight: 66.67 kg

DRUGS (11)
  1. PROCRIT [Suspect]
     Indication: ANAEMIA
     Dosage: 10000 ML, QWK
     Dates: start: 201106
  2. CALCITRIOL [Concomitant]
     Dosage: 0.25 MG, 3 TIMES/WK
  3. ATENOLOL [Concomitant]
     Indication: HYPERTENSION
     Dosage: 75 MG, UNK, 50 MG 1 IN MORNING, 25 MG 1 IN THE EVENING
     Route: 048
  4. AMLOPINE [Concomitant]
     Indication: HYPERTENSION
     Dosage: 0.5 MG, QD
     Route: 048
  5. PLAVIX [Concomitant]
     Dosage: 75 MG, QD
     Route: 048
  6. SIMVASTIN [Concomitant]
     Indication: HYPERCHOLESTEROLAEMIA
     Dosage: 40 MG, QD
     Route: 048
  7. ASPIRIN [Concomitant]
     Dosage: 81 MG, QD
     Route: 048
  8. ALLOPURINOL [Concomitant]
     Indication: GOUT
     Dosage: 100 MG, QD
     Route: 048
  9. TAMSULOSIN [Concomitant]
     Indication: BENIGN PROSTATIC HYPERPLASIA
     Dosage: 0.4 MG, QD
     Route: 048
  10. LOVAZA [Concomitant]
     Dosage: 1 G, QD
     Route: 048
  11. KIONEX [Concomitant]
     Dosage: 15 G, 3 TIMES/WK

REACTIONS (2)
  - Glomerular filtration rate decreased [Not Recovered/Not Resolved]
  - Anaemia [Not Recovered/Not Resolved]
